FAERS Safety Report 25990043 (Version 1)
Quarter: 2025Q4

REPORT INFORMATION
  Report Type: Report from Study
  Country: CA (occurrence: CA)
  Receive Date: 20251103
  Receipt Date: 20251103
  Transmission Date: 20260117
  Serious: Yes (Hospitalization)
  Sender: AMGEN
  Company Number: CA-AMGEN-CANSL2025201138

PATIENT
  Age: 76 Year
  Sex: Female
  Weight: 41.7 kg

DRUGS (1)
  1. IMDELLTRA [Suspect]
     Active Substance: TARLATAMAB-DLLE
     Indication: Small cell lung cancer
     Dosage: 10 MILLIGRAM
     Route: 040

REACTIONS (5)
  - Confusional state [Unknown]
  - Fall [Unknown]
  - Skin laceration [Unknown]
  - Administration site extravasation [Unknown]
  - Off label use [Unknown]

NARRATIVE: CASE EVENT DATE: 20251007
